FAERS Safety Report 10223191 (Version 1)
Quarter: 2014Q2

REPORT INFORMATION
  Report Type: Spontaneous
  Country: US (occurrence: US)
  Receive Date: 20140608
  Receipt Date: 20140608
  Transmission Date: 20141212
  Serious: Yes (Hospitalization)
  Sender: FDA-Public Use
  Company Number: US-ROCHE-1414349

PATIENT
  Age: 66 Year
  Sex: Male

DRUGS (2)
  1. ACTEMRA [Suspect]
     Indication: RHEUMATOID ARTHRITIS
     Route: 042
  2. ACTEMRA [Suspect]
     Route: 042
     Dates: start: 20140602, end: 20140602

REACTIONS (3)
  - Convulsion [Recovered/Resolved]
  - Respiratory depression [Recovered/Resolved]
  - Pulse absent [Recovered/Resolved]
